FAERS Safety Report 24874582 (Version 1)
Quarter: 2025Q1

REPORT INFORMATION
  Report Type: Spontaneous
  Country: US (occurrence: US)
  Receive Date: 20250122
  Receipt Date: 20250122
  Transmission Date: 20250409
  Serious: No
  Sender: ELI LILLY AND COMPANY
  Company Number: US-ELI_LILLY_AND_COMPANY-US202501012938

PATIENT
  Age: 42 Year
  Sex: Female

DRUGS (4)
  1. MOUNJARO [Suspect]
     Active Substance: TIRZEPATIDE
     Indication: Inflammatory bowel disease
     Route: 065
     Dates: start: 20220101
  2. MOUNJARO [Suspect]
     Active Substance: TIRZEPATIDE
     Indication: Inflammatory bowel disease
     Route: 065
     Dates: start: 20220101
  3. MOUNJARO [Suspect]
     Active Substance: TIRZEPATIDE
     Indication: Inflammatory bowel disease
     Route: 065
     Dates: start: 20220101
  4. MOUNJARO [Suspect]
     Active Substance: TIRZEPATIDE
     Indication: Inflammatory bowel disease
     Route: 065
     Dates: start: 20220101

REACTIONS (2)
  - Somnolence [Unknown]
  - Off label use [Unknown]
